FAERS Safety Report 8094636-7 (Version None)
Quarter: 2012Q1

REPORT INFORMATION
  Report Type: 
  Country: None (occurrence: None)
  Receive Date: 20120131
  Receipt Date: 20120125
  Transmission Date: 20120608
  Serious: Yes (Death, Other)
  Sender: FDA-Public Use
  Company Number: US-CELGENEUS-163-21880-11101540

PATIENT
  Sex: Male

DRUGS (15)
  1. REVLIMID [Suspect]
     Route: 048
     Dates: start: 20100606
  2. LASIX [Concomitant]
     Route: 065
  3. TERAPIN [Concomitant]
     Route: 065
  4. REVLIMID [Suspect]
     Dosage: 10 MILLIGRAM
     Route: 048
     Dates: start: 20110501
  5. DECADRON [Concomitant]
     Route: 065
  6. ATENOLOL [Concomitant]
     Route: 065
  7. DILAUDID [Concomitant]
     Route: 065
  8. OMEPRAZOLE [Concomitant]
     Route: 065
  9. FRAGMIN [Concomitant]
     Route: 065
  10. PRILOSEC [Concomitant]
     Route: 065
  11. DALTEPARIN SODIUM [Concomitant]
     Route: 065
  12. CIPROFLOXACIN [Concomitant]
     Route: 065
  13. REVLIMID [Suspect]
     Indication: MULTIPLE MYELOMA
     Dosage: 10 MILLIGRAM
     Route: 048
     Dates: start: 20100401
  14. MAGNESIUM HYDROXIDE TAB [Concomitant]
     Route: 065
  15. SIMVASTATIN [Concomitant]
     Route: 065

REACTIONS (4)
  - THROMBOCYTOPENIA [None]
  - HAEMORRHAGE [None]
  - MULTIPLE MYELOMA [None]
  - NEUTROPENIA [None]
